FAERS Safety Report 7538786-X (Version None)
Quarter: 2011Q2

REPORT INFORMATION
  Report Type: 
  Country: None (occurrence: None)
  Receive Date: 20110610
  Receipt Date: 20110128
  Transmission Date: 20111010
  Serious: Yes (Hospitalization, Other)
  Sender: FDA-Public Use
  Company Number: US-BAYER-201041604NA

PATIENT
  Age: 43 Year
  Sex: Female
  Weight: 104.31 kg

DRUGS (16)
  1. LOSARTAN POTASSIUM [Concomitant]
  2. VITAMIN D [Concomitant]
  3. ALBUTEROL SULFATE AUTOHALER [Concomitant]
  4. YAZ [Suspect]
     Indication: DYSFUNCTIONAL UTERINE BLEEDING
     Dosage: UNK UNK, UNK
     Route: 048
     Dates: start: 20080601, end: 20081101
  5. ADVAIR DISKUS 100/50 [Concomitant]
  6. POTASSIUM CHLORIDE [Concomitant]
     Dosage: UNK
     Dates: start: 20080601
  7. REVATIO [Concomitant]
     Indication: ARRHYTHMIA
  8. METOPROLOL SUCCINATE [Concomitant]
     Indication: ATRIAL FIBRILLATION
     Dosage: UNK
     Dates: start: 20080301, end: 20090501
  9. LASIX [Concomitant]
     Dosage: UNK
     Dates: start: 20061101
  10. SOTALOL HCL [Concomitant]
     Indication: PULMONARY HYPERTENSION
  11. SOTALOL HCL [Concomitant]
     Indication: ARRHYTHMIA
     Dosage: UNK
     Dates: start: 20070101
  12. DIOVAN [Concomitant]
     Indication: PULMONARY HYPERTENSION
  13. REVATIO [Concomitant]
     Indication: PULMONARY HYPERTENSION
  14. DIOVAN [Concomitant]
     Indication: ARRHYTHMIA
     Dosage: UNK
     Dates: start: 20071001
  15. AMOXICILLIN [Concomitant]
     Dosage: UNK
     Dates: start: 20080901, end: 20081001
  16. AZITHROMYCIN [Concomitant]
     Indication: PNEUMONIA
     Dosage: UNK
     Dates: start: 20081027

REACTIONS (6)
  - CEREBRAL ARTERY OCCLUSION [None]
  - CEREBROVASCULAR ACCIDENT [None]
  - MEMORY IMPAIRMENT [None]
  - PULMONARY EMBOLISM [None]
  - APHASIA [None]
  - SPEECH DISORDER [None]
